FAERS Safety Report 23816049 (Version 1)
Quarter: 2024Q2

REPORT INFORMATION
  Report Type: Spontaneous
  Country: US (occurrence: None)
  Receive Date: 20240503
  Receipt Date: 20240503
  Transmission Date: 20240716
  Serious: No
  Sender: FDA-Public Use
  Company Number: None

PATIENT
  Sex: Male
  Weight: 64.2 kg

DRUGS (2)
  1. CISPLATIN [Suspect]
     Active Substance: CISPLATIN
     Indication: Laboratory test abnormal
     Dates: start: 20240418
  2. CISPLATIN [Suspect]
     Active Substance: CISPLATIN
     Indication: Intentional dose omission

REACTIONS (5)
  - Blood creatinine increased [None]
  - Creatinine renal clearance increased [None]
  - Blood sodium decreased [None]
  - Malnutrition [None]
  - Urinary retention [None]

NARRATIVE: CASE EVENT DATE: 20240425
